FAERS Safety Report 5545904-1 (Version None)
Quarter: 2007Q4

REPORT INFORMATION
  Report Type: 
  Country: None (occurrence: None)
  Receive Date: 20071211
  Receipt Date: 20071001
  Transmission Date: 20080405
  Serious: No
  Sender: FDA-Public Use
  Company Number: US-ASTRAZENECA-2007UW22946

PATIENT
  Age: 71 Year
  Sex: Female

DRUGS (5)
  1. SYMBICORT [Suspect]
     Indication: BRONCHITIS
     Dosage: 160/4.5 UG
     Route: 055
  2. SYMBICORT [Suspect]
     Indication: HYPERSENSITIVITY
     Dosage: 160/4.5 UG
     Route: 055
  3. ZYRTEC [Concomitant]
  4. NEXIUM [Concomitant]
     Route: 048
  5. EFFEXOR [Concomitant]

REACTIONS (2)
  - ASTHENIA [None]
  - DRUG INEFFECTIVE [None]
